FAERS Safety Report 7785881-6 (Version None)
Quarter: 2011Q3

REPORT INFORMATION
  Report Type: 
  Country: None (occurrence: None)
  Receive Date: 20110929
  Receipt Date: 20110928
  Transmission Date: 20111222
  Serious: Yes (Hospitalization)
  Sender: FDA-Public Use
  Company Number: IT-SANOFI-AVENTIS-2011SA063373

PATIENT
  Age: 79 Year
  Sex: Female

DRUGS (4)
  1. BI-EUGLUCON M [Concomitant]
     Route: 048
  2. PLAQUENIL [Suspect]
     Route: 048
     Dates: start: 20110601, end: 20110606
  3. TICLOPIDINE HCL [Concomitant]
     Route: 048
  4. OMEPRAZOLE [Concomitant]
     Route: 048

REACTIONS (2)
  - PRESYNCOPE [None]
  - SKIN EXFOLIATION [None]
